FAERS Safety Report 5014925-X (Version None)
Quarter: 2006Q2

REPORT INFORMATION
  Report Type: 
  Country: None (occurrence: None)
  Receive Date: 20060531
  Receipt Date: 20040420
  Transmission Date: 20061013
  Serious: Yes (Other)
  Sender: FDA-Public Use
  Company Number: BR-ROCHE-365244

PATIENT
  Age: 32 Year
  Sex: Female
  Weight: 53.5 kg

DRUGS (1)
  1. ROACUTAN [Suspect]
     Indication: ACNE
     Route: 048
     Dates: start: 20031115, end: 20040915

REACTIONS (9)
  - ACNE [None]
  - CRYING [None]
  - DEPRESSION [None]
  - GASTRIC DISORDER [None]
  - LIP DRY [None]
  - MOOD ALTERED [None]
  - MOUTH HAEMORRHAGE [None]
  - NAUSEA [None]
  - NERVOUS SYSTEM DISORDER [None]
